FAERS Safety Report 9539133 (Version 1)
Quarter: 2013Q2

REPORT INFORMATION
  Report Type: Spontaneous
  Country: US (occurrence: None)
  Receive Date: 20130521
  Receipt Date: 20130521
  Transmission Date: 20140414
  Serious: No
  Sender: FDA-Public Use
  Company Number: 1000042964

PATIENT
  Age: 36 Year
  Sex: Female

DRUGS (2)
  1. TUDORZA PRESSAIR (ACLIDINIUM BROMIDE) (400 MICROGRAM, POWDER) [Suspect]
     Indication: TOTAL LUNG CAPACITY DECREASED
     Dosage: 400 MCG, 2 IN 1 D) RESPIRATORY
     Route: 055
     Dates: start: 201302, end: 201302
  2. DULERA [Concomitant]

REACTIONS (4)
  - Accidental overdose [None]
  - Oxygen saturation decreased [None]
  - Hyperhidrosis [None]
  - Off label use [None]
